FAERS Safety Report 14214561 (Version 2)
Quarter: 2018Q2

REPORT INFORMATION
  Report Type: Spontaneous
  Country: US (occurrence: US)
  Receive Date: 20171122
  Receipt Date: 20180507
  Transmission Date: 20180711
  Serious: No
  Sender: FDA-Public Use
  Company Number: US-PFIZER INC-2017499921

PATIENT
  Age: 63 Year
  Sex: Female
  Weight: 100 kg

DRUGS (1)
  1. IBRANCE [Suspect]
     Active Substance: PALBOCICLIB
     Indication: BREAST CANCER METASTATIC
     Dosage: 125 MG, CYCLIC (D1-D21Q28)
     Route: 048
     Dates: start: 20171101

REACTIONS (9)
  - Vomiting [Unknown]
  - Cough [Unknown]
  - Vision blurred [Unknown]
  - Rash [Unknown]
  - Productive cough [Unknown]
  - Nausea [Unknown]
  - Peripheral swelling [Unknown]
  - Tooth infection [Unknown]
  - Upper respiratory tract infection [Unknown]

NARRATIVE: CASE EVENT DATE: 201711
